FAERS Safety Report 25489822 (Version 1)
Quarter: 2025Q2

REPORT INFORMATION
  Report Type: Spontaneous
  Country: IT (occurrence: IT)
  Receive Date: 20250627
  Receipt Date: 20250627
  Transmission Date: 20250717
  Serious: Yes (Other)
  Sender: NOVARTIS
  Company Number: IT-SUN PHARMACEUTICAL INDUSTRIES LTD-2025RR-512293

PATIENT
  Age: 15 Year
  Sex: Female

DRUGS (1)
  1. DEFERASIROX [Suspect]
     Active Substance: DEFERASIROX
     Indication: Transfusion
     Dosage: 1080 MG, QD
     Route: 048

REACTIONS (8)
  - Hepatic failure [Recovered/Resolved]
  - Hepatic encephalopathy [Unknown]
  - Pyrexia [Recovered/Resolved]
  - Renal failure [Recovered/Resolved]
  - Hyperammonaemia [Recovered/Resolved]
  - Vomiting [Recovered/Resolved]
  - Nausea [Recovered/Resolved]
  - Acidosis [Recovered/Resolved]
